FAERS Safety Report 6106067-7 (Version None)
Quarter: 2009Q1

REPORT INFORMATION
  Report Type: 
  Country: None (occurrence: None)
  Receive Date: 20090306
  Receipt Date: 20090223
  Transmission Date: 20090719
  Serious: Yes (Other)
  Sender: FDA-Public Use
  Company Number: JP-BRISTOL-MYERS SQUIBB COMPANY-14492615

PATIENT
  Age: 52 Year
  Sex: Male
  Weight: 64 kg

DRUGS (3)
  1. ABILIFY [Suspect]
     Indication: SCHIZOPHRENIA
     Dosage: 12MG,QD-03SEP08-21NOV08(80DAYS);6 MG/D,PO-22NOV2008-09JAN2008;(49 DAYS).
     Route: 048
     Dates: start: 20080903, end: 20090109
  2. BROTIZOLAM [Concomitant]
     Dosage: TABLET
     Dates: start: 20080303
  3. TRIHEXYPHENIDYL HCL [Concomitant]
     Dosage: TABLET
     Dates: start: 20080310

REACTIONS (1)
  - PSYCHIATRIC SYMPTOM [None]
